FAERS Safety Report 5492285-8 (Version None)
Quarter: 2007Q4

REPORT INFORMATION
  Report Type: 
  Country: None (occurrence: None)
  Receive Date: 20071022
  Receipt Date: 20071010
  Transmission Date: 20080405
  Serious: Yes (Hospitalization)
  Sender: FDA-Public Use
  Company Number: US-ROCHE-517305

PATIENT
  Age: 64 Year
  Sex: Male
  Weight: 85.7 kg

DRUGS (9)
  1. GRANISETRON  HCL [Suspect]
     Indication: DRUG USE FOR UNKNOWN INDICATION
     Route: 065
  2. CAPECITABINE [Suspect]
     Indication: DRUG USE FOR UNKNOWN INDICATION
     Route: 065
  3. OXALIPLATIN [Suspect]
     Indication: DRUG USE FOR UNKNOWN INDICATION
     Route: 065
  4. ARANESP [Suspect]
     Route: 058
     Dates: start: 20070813, end: 20070813
  5. DEXAMETHASONE 0.5MG TAB [Suspect]
     Indication: DRUG USE FOR UNKNOWN INDICATION
     Route: 065
  6. ACETYLSALICYLIC ACID SRT [Concomitant]
     Route: 048
  7. AVASTIN [Concomitant]
     Dosage: DRUG NAME REPORTED AS AVASTIN (ANTINEOPLASTIC AND IMMUNOSUPPRESSIBVE AGENTS)
     Dates: start: 20070702
  8. IRON [Concomitant]
     Dosage: AMOUNT REPORTED AS PER LABEL DAILY
     Route: 048
     Dates: start: 20070705
  9. ZIAC [Concomitant]
     Route: 048
     Dates: start: 20070619

REACTIONS (1)
  - COLITIS [None]
